FAERS Safety Report 6797716 (Version 3)
Quarter: 2020Q3

REPORT INFORMATION
  Report Type: Report from Study
  Country: US (occurrence: US)
  Receive Date: 20081028
  Receipt Date: 20081202
  Transmission Date: 20201104
  Serious: Yes (Death, Other)
  Sender: FDA-Public Use
  Company Number: US-ROCHE-593286

PATIENT
  Sex: Female

DRUGS (1)
  1. IBANDRONIC ACID. [Suspect]
     Active Substance: IBANDRONIC ACID
     Indication: OSTEOPOROSIS
     Route: 048

REACTIONS (5)
  - Respiratory failure [Fatal]
  - Dysphagia [Unknown]
  - Cardio-respiratory arrest [Fatal]
  - Cerebrovascular accident [Fatal]
  - Atrial fibrillation [Unknown]
